FAERS Safety Report 7150154-1 (Version None)
Quarter: 2010Q4

REPORT INFORMATION
  Report Type: 
  Country: None (occurrence: None)
  Receive Date: 20101124
  Receipt Date: 20101117
  Transmission Date: 20110411
  Serious: Yes (Other)
  Sender: FDA-Public Use
  Company Number: 2010SP047656

PATIENT
  Age: 37 Year
  Sex: Female

DRUGS (3)
  1. IMPLANON [Suspect]
     Indication: CONTRACEPTION
     Dates: start: 20100813
  2. ADVIL [Concomitant]
  3. BETAMETHASONE VALERATE [Concomitant]

REACTIONS (1)
  - IMPLANT SITE CELLULITIS [None]
